FAERS Safety Report 18534281 (Version 2)
Quarter: 2020Q4

REPORT INFORMATION
  Report Type: Spontaneous
  Country: JP (occurrence: JP)
  Receive Date: 20201123
  Receipt Date: 20201208
  Transmission Date: 20210114
  Serious: Yes (Other)
  Sender: FDA-Public Use
  Company Number: JP-ASTRAZENECA-2020SF52138

PATIENT
  Age: 39 Year
  Sex: Male

DRUGS (5)
  1. VENCOLL [Concomitant]
     Active Substance: CASANTHRANOL\DOCUSATE SODIUM
     Indication: CONSTIPATION
     Dosage: 6 DF, 2 DF/8 HOURS
     Dates: start: 20120409, end: 20200620
  2. ROSUVASTATIN. [Suspect]
     Active Substance: ROSUVASTATIN
     Indication: HYPERCHOLESTEROLAEMIA
     Route: 048
     Dates: start: 20170913
  3. MAGMITT [Concomitant]
     Active Substance: MAGNESIUM OXIDE
     Indication: CONSTIPATION
     Dosage: 660 MG/8 HOURS
     Dates: start: 20120409, end: 20120620
  4. MAGMITT [Concomitant]
     Active Substance: MAGNESIUM OXIDE
     Indication: CONSTIPATION
     Dosage: 1320 MG, 660 MG/12 HOURS
     Dates: start: 20120808, end: 20180112
  5. VENCOLL [Concomitant]
     Active Substance: CASANTHRANOL\DOCUSATE SODIUM
     Indication: CONSTIPATION
     Dosage: 6 DF, 2 DF/8 HOURS
     Dates: start: 20120808, end: 20180112

REACTIONS (1)
  - Drug-induced liver injury [Unknown]

NARRATIVE: CASE EVENT DATE: 20170302
